FAERS Safety Report 20658699 (Version 1)
Quarter: 2022Q1

REPORT INFORMATION
  Report Type: Spontaneous
  Country: US (occurrence: None)
  Receive Date: 20220331
  Receipt Date: 20220331
  Transmission Date: 20220423
  Serious: No
  Sender: FDA-Public Use
  Company Number: US-FRESENIUS KABI-FK202203767

PATIENT
  Age: 60 Year
  Sex: Female
  Weight: 98 kg

DRUGS (2)
  1. CISPLATIN [Suspect]
     Active Substance: CISPLATIN
     Indication: Lung neoplasm malignant
     Dosage: GIVEN TOGETHER IN ONE, 150 MG DOSE
     Route: 042
     Dates: start: 20220316, end: 20220316
  2. CISPLATIN [Suspect]
     Active Substance: CISPLATIN
     Dosage: GIVEN TOGETHER IN ONE, 150 MG DOSE
     Route: 042
     Dates: start: 20220316, end: 20220316

REACTIONS (2)
  - Feeling hot [Recovered/Resolved]
  - Hyperhidrosis [Recovered/Resolved]

NARRATIVE: CASE EVENT DATE: 20220316
